FAERS Safety Report 6644518-X (Version None)
Quarter: 2010Q1

REPORT INFORMATION
  Report Type: 
  Country: None (occurrence: None)
  Receive Date: 20100319
  Receipt Date: 20100319
  Transmission Date: 20100710
  Serious: Yes (Hospitalization, Disabling)
  Sender: FDA-Public Use
  Company Number: None

PATIENT
  Age: 60 Year
  Sex: Female

DRUGS (1)
  1. FLECAINIDE ACETATE [Suspect]
     Indication: ATRIAL FIBRILLATION
     Dosage: 50 MG 2X
     Dates: start: 20091023

REACTIONS (3)
  - BLINDNESS [None]
  - BLOOD POTASSIUM INCREASED [None]
  - RENAL FAILURE [None]
